FAERS Safety Report 18618574 (Version 3)
Quarter: 2021Q1

REPORT INFORMATION
  Report Type: Spontaneous
  Country: ES (occurrence: ES)
  Receive Date: 20201215
  Receipt Date: 20210120
  Transmission Date: 20210419
  Serious: Yes (Other)
  Sender: FDA-Public Use
  Company Number: ES-PFIZER INC-2020490965

PATIENT
  Age: 68 Year
  Sex: Male
  Weight: 43 kg

DRUGS (4)
  1. FLUOROURACIL. [Suspect]
     Active Substance: FLUOROURACIL
     Indication: METASTASES TO LIVER
     Dosage: RECEIVED 3 CYCLE; 400 MG/M2 BOLUS, FOLLOWED BY 1200 MG/M2 IN 46 H. IV
     Route: 042
  2. CETUXIMAB. [Suspect]
     Active Substance: CETUXIMAB
     Indication: METASTASES TO LIVER
     Dosage: RECEIVED 3 CYCLE
     Route: 042
  3. FLUOROURACIL. [Suspect]
     Active Substance: FLUOROURACIL
     Dosage: RECEIVED 3 CYCLE; 400 MG/M2 BOLUS, FOLLOWED BY 1200 MG/M2 IN 46 H. IV
     Route: 042
  4. OXALIPLATIN. [Suspect]
     Active Substance: OXALIPLATIN
     Indication: METASTASES TO LIVER
     Dosage: RECEIVED 3 CYCLE
     Route: 042

REACTIONS (2)
  - Gastrointestinal toxicity [Not Recovered/Not Resolved]
  - Necrotising oesophagitis [Not Recovered/Not Resolved]
